FAERS Safety Report 19430809 (Version 1)
Quarter: 2021Q2

REPORT INFORMATION
  Report Type: Spontaneous
  Country: BR (occurrence: BR)
  Receive Date: 20210617
  Receipt Date: 20210617
  Transmission Date: 20210717
  Serious: Yes (Hospitalization, Other)
  Sender: FDA-Public Use
  Company Number: BR-NOVOPROD-814111

PATIENT
  Age: 5 Year
  Sex: Male
  Weight: 16.7 kg

DRUGS (5)
  1. TRESIBA [Suspect]
     Active Substance: INSULIN DEGLUDEC
     Indication: PRODUCT USED FOR UNKNOWN INDICATION
     Dosage: 8 IU? 6.5 IU. PRESCRIBED 6 UI, AT 7 AM
     Route: 065
  2. FIASP [Suspect]
     Active Substance: INSULIN ASPART
     Dosage: 2 IU BEFORE BREAKFAST, LUNCH AND DINNER, 1 IU BEFORE AFTERNOON SNACK; AND ACCORDING TO BLOOD GLUCOSE
     Route: 065
  3. NOVORAPID [Suspect]
     Active Substance: INSULIN ASPART
     Indication: PRODUCT USED FOR UNKNOWN INDICATION
     Dosage: : 2 UI BEFORE BREAKFAST, LUNCH AND DINNER, 1 UI BEFORE AFTERNOON; AND ACCORDING TO BLOOD GLUCOSE
     Route: 065
  4. INSULIN GLARGINE [Concomitant]
     Active Substance: INSULIN GLARGINE
     Dosage: 8 UI AT 9PM
  5. FIASP [Suspect]
     Active Substance: INSULIN ASPART
     Indication: PRODUCT USED FOR UNKNOWN INDICATION
     Dosage: UNK
     Route: 065

REACTIONS (4)
  - Hypoglycaemia [Unknown]
  - Diabetic ketoacidosis [Unknown]
  - Lipodystrophy acquired [Unknown]
  - Hyperglycaemia [Unknown]
